FAERS Safety Report 25192495 (Version 1)
Quarter: 2025Q2

REPORT INFORMATION
  Report Type: Spontaneous
  Country: PH (occurrence: PH)
  Receive Date: 20250414
  Receipt Date: 20250414
  Transmission Date: 20250717
  Serious: Yes (Other)
  Sender: SANDOZ
  Company Number: PH-SANDOZ-SDZ2023PH028773

PATIENT
  Sex: Male
  Weight: 82 kg

DRUGS (2)
  1. GLICLAZIDE [Suspect]
     Active Substance: GLICLAZIDE
     Indication: Diabetes mellitus
     Dosage: 80 MG, BID
     Route: 048
     Dates: start: 20200211, end: 20221201
  2. METFORMIN\VILDAGLIPTIN [Suspect]
     Active Substance: METFORMIN\VILDAGLIPTIN
     Indication: Diabetes mellitus
     Dosage: 50/500 MG, QID
     Route: 065
     Dates: start: 20200211, end: 20221201

REACTIONS (2)
  - Chronic kidney disease [Unknown]
  - Diabetic neuropathy [Unknown]
